FAERS Safety Report 13665536 (Version 1)
Quarter: 2017Q2

REPORT INFORMATION
  Report Type: Spontaneous
  Country: ES (occurrence: ES)
  Receive Date: 20170619
  Receipt Date: 20170619
  Transmission Date: 20170830
  Serious: Yes (Other)
  Sender: FDA-Public Use
  Company Number: ES-PFIZER INC-2017257407

PATIENT
  Age: 40 Year
  Sex: Male
  Weight: 70 kg

DRUGS (1)
  1. DALACIN [Suspect]
     Active Substance: CLINDAMYCIN
     Indication: PROPHYLAXIS
     Dosage: UNK
     Route: 048
     Dates: start: 201706, end: 201706

REACTIONS (3)
  - Diarrhoea [Recovering/Resolving]
  - Haematochezia [Recovering/Resolving]
  - Colitis [Recovering/Resolving]

NARRATIVE: CASE EVENT DATE: 201706
